FAERS Safety Report 15475511 (Version 1)
Quarter: 2018Q4

REPORT INFORMATION
  Report Type: Spontaneous
  Country: DE (occurrence: DE)
  Receive Date: 20181008
  Receipt Date: 20181008
  Transmission Date: 20190205
  Serious: Yes (Other)
  Sender: FDA-Public Use
  Company Number: DE-PURDUE PHARMA-GBR-2018-0059943

PATIENT
  Sex: Female

DRUGS (6)
  1. OXYCODONE HYDROCHLORIDE / NALOXONE HYDROCHLORIDE [Suspect]
     Active Substance: NALOXONE HYDROCHLORIDE\OXYCODONE HYDROCHLORIDE
     Indication: PAIN
  2. OEKOLP [Concomitant]
     Dosage: UNK
  3. EFEROX [Concomitant]
     Active Substance: LEVOTHYROXINE SODIUM
  4. MAGNESIUM [Concomitant]
     Active Substance: MAGNESIUM
  5. OXYCODONE HYDROCHLORIDE / NALOXONE HYDROCHLORIDE [Suspect]
     Active Substance: NALOXONE HYDROCHLORIDE\OXYCODONE HYDROCHLORIDE
     Indication: PRODUCT USED FOR UNKNOWN INDICATION
     Dosage: (10 MILLIGRAM/5 MILLIGRAM),DAILY
     Route: 065
  6. OXYCODONE HYDROCHLORIDE / NALOXONE HYDROCHLORIDE [Suspect]
     Active Substance: NALOXONE HYDROCHLORIDE\OXYCODONE HYDROCHLORIDE
     Indication: RESTLESS LEGS SYNDROME
     Dosage: (5 MILLIGRAM/2,5 MILLIGRAM) DAILY, DAILY
     Route: 065
     Dates: start: 201805

REACTIONS (3)
  - Gastrointestinal pain [Not Recovered/Not Resolved]
  - Incorrect product administration duration [Not Recovered/Not Resolved]
  - Flatulence [Not Recovered/Not Resolved]
